FAERS Safety Report 5778331-2 (Version None)
Quarter: 2008Q2

REPORT INFORMATION
  Report Type: 
  Country: None (occurrence: None)
  Receive Date: 20080617
  Receipt Date: 20080603
  Transmission Date: 20081010
  Serious: Yes (Hospitalization)
  Sender: FDA-Public Use
  Company Number: 2008AL006490

PATIENT
  Age: 39 Year
  Sex: Female

DRUGS (6)
  1. OXYCODONE AND ACETAMINOPHEN [Suspect]
     Indication: HEADACHE
     Dates: start: 19960101
  2. BUTALBITAL/CODEINE/PARACETAMOL [Concomitant]
  3. BUTALBITAL/CODEINE BUTORPHANOL [Concomitant]
  4. CAFFEINE/ERGOTAMINE [Concomitant]
  5. HYDROCODONE [Concomitant]
  6. MORPHINE [Concomitant]

REACTIONS (5)
  - DRUG ABUSE [None]
  - DRUG INEFFECTIVE [None]
  - DRUG WITHDRAWAL SYNDROME [None]
  - HEADACHE [None]
  - INTENTIONAL DRUG MISUSE [None]
